FAERS Safety Report 6532399-4 (Version None)
Quarter: 2010Q1

REPORT INFORMATION
  Report Type: 
  Country: None (occurrence: None)
  Receive Date: 20100108
  Receipt Date: 20100104
  Transmission Date: 20100710
  Serious: Yes (Hospitalization)
  Sender: FDA-Public Use
  Company Number: KR-GENENTECH-289504

PATIENT
  Sex: Female
  Weight: 55.7 kg

DRUGS (29)
  1. RITUXIMAB [Suspect]
     Indication: DIFFUSE LARGE B-CELL LYMPHOMA
     Dosage: 562 MG, UNK
     Route: 042
     Dates: start: 20090807, end: 20091214
  2. RITUXIMAB [Suspect]
     Dosage: 562 MG, UNK
     Route: 042
     Dates: start: 20091214, end: 20091218
  3. CYCLOPHOSPHAMIDE [Suspect]
     Indication: DIFFUSE LARGE B-CELL LYMPHOMA
     Dosage: 1125 MG, UNK
     Route: 065
     Dates: start: 20090808, end: 20091123
  4. CYCLOPHOSPHAMIDE [Suspect]
     Dosage: UNK
     Route: 065
     Dates: start: 20091214, end: 20091214
  5. DOXORUBICIN HCL [Suspect]
     Indication: DIFFUSE LARGE B-CELL LYMPHOMA
     Dosage: 75 MG, UNK
     Route: 065
     Dates: start: 20090808, end: 20091214
  6. DOXORUBICIN HCL [Suspect]
     Dosage: UNK
     Route: 065
     Dates: start: 20091214, end: 20091218
  7. VINCRISTINE [Suspect]
     Indication: DIFFUSE LARGE B-CELL LYMPHOMA
     Dosage: 2 MG, UNK
     Route: 065
     Dates: start: 20090808, end: 20091214
  8. VINCRISTINE [Suspect]
     Dosage: UNK
     Route: 065
     Dates: start: 20091214, end: 20091218
  9. PREDNISOLONE [Suspect]
     Indication: DIFFUSE LARGE B-CELL LYMPHOMA
     Dosage: 100 MG, UNK
     Route: 065
     Dates: start: 20090808, end: 20091124
  10. PREDNISOLONE [Suspect]
     Dosage: UNK
     Route: 065
     Dates: start: 20091214, end: 20091218
  11. AMLODIPINE BESYLATE [Concomitant]
     Indication: DRUG USE FOR UNKNOWN INDICATION
     Dosage: UNK
     Dates: start: 20090701
  12. TRIMEBUTINE MALEATE [Concomitant]
     Indication: DRUG USE FOR UNKNOWN INDICATION
     Dosage: UNK
     Dates: start: 20090806
  13. MAGNESIUM OXIDE [Concomitant]
     Indication: DRUG USE FOR UNKNOWN INDICATION
     Dosage: UNK
     Dates: start: 20090806, end: 20090820
  14. FENTANYL-100 [Concomitant]
     Indication: DRUG USE FOR UNKNOWN INDICATION
     Dosage: UNK
     Dates: start: 20090809
  15. FAMOTIDINE [Concomitant]
     Indication: DRUG USE FOR UNKNOWN INDICATION
     Dosage: UNK
     Dates: start: 20090809, end: 20090812
  16. SODIUM ALGINATE [Concomitant]
     Indication: DRUG USE FOR UNKNOWN INDICATION
     Dosage: UNK
     Dates: start: 20090809, end: 20090812
  17. GLIMEPIRIDE [Concomitant]
     Indication: DRUG USE FOR UNKNOWN INDICATION
     Dosage: UNK
     Dates: start: 20091030
  18. WARFARIN SODIUM [Concomitant]
     Indication: DRUG USE FOR UNKNOWN INDICATION
     Dosage: UNK
     Dates: start: 20090824
  19. FERROUS SULFATE TAB [Concomitant]
     Indication: DRUG USE FOR UNKNOWN INDICATION
     Dosage: UNK
     Dates: start: 20091123
  20. MUCOPROTEOSE [Concomitant]
     Indication: DRUG USE FOR UNKNOWN INDICATION
     Dosage: UNK
     Dates: start: 20091123
  21. MEGESTROL ACETATE [Concomitant]
     Indication: DRUG USE FOR UNKNOWN INDICATION
  22. CALCIUM CARBONATE [Concomitant]
     Indication: DRUG USE FOR UNKNOWN INDICATION
  23. BROMELAINS [Concomitant]
     Indication: DRUG USE FOR UNKNOWN INDICATION
  24. DEHYDROCHOLIC ACID [Concomitant]
     Indication: DRUG USE FOR UNKNOWN INDICATION
  25. PANCREATIN [Concomitant]
     Indication: DRUG USE FOR UNKNOWN INDICATION
  26. SIMETHICONE [Concomitant]
     Indication: DRUG USE FOR UNKNOWN INDICATION
  27. TRIMEBUTINE [Concomitant]
     Indication: DRUG USE FOR UNKNOWN INDICATION
  28. IBANDRONATE SODIUM [Concomitant]
     Indication: OSTEOPOROSIS
  29. CALCIUM CARBONATE [Concomitant]
     Indication: OSTEOPOROSIS

REACTIONS (2)
  - COMPRESSION FRACTURE [None]
  - FEBRILE NEUTROPENIA [None]
